FAERS Safety Report 17802994 (Version 2)
Quarter: 2022Q3

REPORT INFORMATION
  Report Type: Spontaneous
  Country: US (occurrence: US)
  Receive Date: 20200519
  Receipt Date: 20220902
  Transmission Date: 20221026
  Serious: Yes (Other)
  Sender: FDA-Public Use
  Company Number: US-PFIZER INC-2020198208

PATIENT
  Age: 60 Year
  Sex: Male

DRUGS (1)
  1. LYRICA [Suspect]
     Active Substance: PREGABALIN
     Dosage: UNK

REACTIONS (11)
  - Suicidal ideation [Unknown]
  - Joint injury [Unknown]
  - Accident at work [Unknown]
  - Burning sensation [Unknown]
  - Pain [Unknown]
  - Nerve injury [Unknown]
  - Hypersensitivity [Unknown]
  - Arthritis [Unknown]
  - Abdominal pain upper [Unknown]
  - Asthenia [Unknown]
  - Nausea [Unknown]
